FAERS Safety Report 4335455-4 (Version None)
Quarter: 2004Q2

REPORT INFORMATION
  Report Type: 
  Country: None (occurrence: None)
  Receive Date: 20040409
  Receipt Date: 20040329
  Transmission Date: 20050107
  Serious: Yes (Death, Hospitalization, Other)
  Sender: FDA-Public Use
  Company Number: FR-BRISTOL-MYERS SQUIBB COMPANY-12544003

PATIENT
  Age: 74 Year
  Sex: Male

DRUGS (6)
  1. AXEPIM INJ 2 GM [Suspect]
     Indication: SEPSIS
     Route: 042
     Dates: start: 19950218, end: 19950222
  2. AMIKACIN [Suspect]
     Dates: start: 19950217, end: 19950218
  3. FUCIDINE CAP [Concomitant]
     Dates: start: 19950219, end: 19950225
  4. HEPARIN [Concomitant]
     Route: 042
     Dates: start: 19950217
  5. VANCOMYCIN [Concomitant]
     Dates: start: 19950217, end: 19950218
  6. FORTUM [Concomitant]
     Dates: start: 19950217, end: 19950218

REACTIONS (10)
  - ACCIDENTAL OVERDOSE [None]
  - CEREBRAL ISCHAEMIA [None]
  - DIARRHOEA HAEMORRHAGIC [None]
  - DISORIENTATION [None]
  - MEDICATION ERROR [None]
  - RENAL FAILURE [None]
  - SHOCK [None]
  - STATUS EPILEPTICUS [None]
  - TACHYARRHYTHMIA [None]
  - THROMBOCYTOPENIA [None]
